FAERS Safety Report 9641889 (Version 3)
Quarter: 2014Q1

REPORT INFORMATION
  Report Type: Spontaneous
  Country: US (occurrence: US)
  Receive Date: 20131023
  Receipt Date: 20140210
  Transmission Date: 20141002
  Serious: Yes (Other)
  Sender: FDA-Public Use
  Company Number: US-B.I. PHARMACEUTICALS,INC./RIDGEFIELD-2013-BI-33095BP

PATIENT
  Age: 66 Year
  Sex: Female
  Weight: 52 kg

DRUGS (4)
  1. SPIRIVA [Suspect]
     Indication: EMPHYSEMA
     Dosage: 18 MCG
     Route: 055
     Dates: start: 2009, end: 2009
  2. SPIRIVA [Suspect]
     Dosage: 18 MCG
     Route: 055
     Dates: start: 2011
  3. COMBIVENT MDI [Concomitant]
     Indication: EMPHYSEMA
     Dosage: 8 PUF
     Route: 055
     Dates: start: 2004
  4. ADVAIR DISKUS [Concomitant]
     Indication: EMPHYSEMA
     Dosage: STRENGTH: 250/50; DAILY DOSE: 500/100
     Route: 055

REACTIONS (5)
  - Bladder cancer [Not Recovered/Not Resolved]
  - Lung carcinoma cell type unspecified recurrent [Recovered/Resolved]
  - Dyspnoea [Not Recovered/Not Resolved]
  - Reading disorder [Not Recovered/Not Resolved]
  - Product quality issue [Unknown]
